FAERS Safety Report 23264096 (Version 1)
Quarter: 2023Q4

REPORT INFORMATION
  Report Type: Spontaneous
  Country: US (occurrence: US)
  Receive Date: 20231205
  Receipt Date: 20231205
  Transmission Date: 20240110
  Serious: Yes (Hospitalization, Other)
  Sender: FDA-Public Use
  Company Number: US-ANIPHARMA-2023-US-041417

PATIENT
  Age: 77 Year
  Sex: Female

DRUGS (2)
  1. CIPROFLOXACIN [Suspect]
     Active Substance: CIPROFLOXACIN
     Indication: Diverticulitis
     Dosage: 500 MG ONCE
     Route: 048
  2. METRONIDAZOLE [Concomitant]
     Active Substance: METRONIDAZOLE
     Dosage: TAKEN ONCE
     Route: 048

REACTIONS (2)
  - Renal tubular injury [Recovered/Resolved]
  - Crystal nephropathy [Recovered/Resolved]
